FAERS Safety Report 20695368 (Version 1)
Quarter: 2022Q2

REPORT INFORMATION
  Report Type: Spontaneous
  Country: US (occurrence: US)
  Receive Date: 20220411
  Receipt Date: 20220411
  Transmission Date: 20220721
  Serious: No
  Sender: FDA-Public Use
  Company Number: US-PFIZER INC-202101665736

PATIENT
  Age: 68 Year
  Sex: Female

DRUGS (1)
  1. PREMARIN [Suspect]
     Active Substance: ESTROGENS, CONJUGATED
     Dosage: 2 G, 2X/WEEK (APPLY 1 APPLICATORFUL BY VAGINAL ROUTE 2 TIMES A WEEK )
     Route: 067

REACTIONS (2)
  - Drug hypersensitivity [Unknown]
  - Off label use [Unknown]
